FAERS Safety Report 23575109 (Version 1)
Quarter: 2024Q1

REPORT INFORMATION
  Report Type: Spontaneous
  Country: US (occurrence: None)
  Receive Date: 20240228
  Receipt Date: 20240228
  Transmission Date: 20240410
  Serious: Yes (Other)
  Sender: FDA-Public Use
  Company Number: 2024A043170

PATIENT
  Age: 613 Month
  Sex: Female

DRUGS (1)
  1. TAGRISSO [Suspect]
     Active Substance: OSIMERTINIB
     Route: 048
     Dates: start: 202212

REACTIONS (7)
  - Back injury [Unknown]
  - Thoracic vertebral fracture [Unknown]
  - Osteoporosis [Unknown]
  - Condition aggravated [Unknown]
  - Malabsorption [Unknown]
  - Malnutrition [Recovering/Resolving]
  - Diarrhoea [Unknown]

NARRATIVE: CASE EVENT DATE: 20230901
